FAERS Safety Report 5074872-4 (Version None)
Quarter: 2006Q3

REPORT INFORMATION
  Report Type: 
  Country: None (occurrence: None)
  Receive Date: 20060804
  Receipt Date: 20060724
  Transmission Date: 20061208
  Serious: Yes (Other)
  Sender: FDA-Public Use
  Company Number: 2006093002

PATIENT
  Age: 32 Year
  Sex: Male
  Weight: 88.4514 kg

DRUGS (2)
  1. CELEBREX [Suspect]
     Indication: DRUG USE FOR UNKNOWN INDICATION
  2. BEXTRA [Suspect]
     Indication: ARTHRITIS

REACTIONS (4)
  - PAIN [None]
  - RASH [None]
  - SCAR [None]
  - SKIN ULCER [None]
